FAERS Safety Report 9888463 (Version 2)
Quarter: 2014Q1

REPORT INFORMATION
  Report Type: Spontaneous
  Country: US (occurrence: US)
  Receive Date: 20140211
  Receipt Date: 20140217
  Transmission Date: 20141002
  Serious: No
  Sender: FDA-Public Use
  Company Number: US-009507513-1402USA003315

PATIENT
  Age: 19 Year
  Sex: Female
  Weight: 97.51 kg

DRUGS (1)
  1. NEXPLANON [Suspect]
     Indication: CONTRACEPTION
     Dosage: 1 ROD EVERY 3 YEARS
     Route: 059
     Dates: start: 20131126

REACTIONS (8)
  - Mass [Unknown]
  - Scratch [Unknown]
  - Contusion [Unknown]
  - Fatigue [Unknown]
  - Dizziness [Unknown]
  - Pain [Unknown]
  - Rash [Unknown]
  - Pruritus [Unknown]
